FAERS Safety Report 13986729 (Version 1)
Quarter: 2017Q3

REPORT INFORMATION
  Report Type: Spontaneous
  Country: US (occurrence: US)
  Receive Date: 20170919
  Receipt Date: 20170919
  Transmission Date: 20171128
  Serious: No
  Sender: FDA-Public Use
  Company Number: US-GLENMARK PHARMACEUTICALS-2017GMK025882

PATIENT

DRUGS (2)
  1. CLOTRIMAZOLE. [Suspect]
     Active Substance: CLOTRIMAZOLE
     Indication: THERMAL BURN
     Dosage: UNK, BID ON BACK
     Route: 061
     Dates: start: 20161224, end: 20170109
  2. CLOTRIMAZOLE. [Suspect]
     Active Substance: CLOTRIMAZOLE
     Indication: CHEMICAL BURN OF SKIN

REACTIONS (5)
  - Condition aggravated [Not Recovered/Not Resolved]
  - Application site pain [Not Recovered/Not Resolved]
  - Application site vesicles [Recovered/Resolved]
  - Chemical burn of skin [Not Recovered/Not Resolved]
  - Off label use [Unknown]

NARRATIVE: CASE EVENT DATE: 20161224
